FAERS Safety Report 6605022-8 (Version None)
Quarter: 2010Q1

REPORT INFORMATION
  Report Type: 
  Country: None (occurrence: None)
  Receive Date: 20100226
  Receipt Date: 20100216
  Transmission Date: 20100710
  Serious: Yes (Other)
  Sender: FDA-Public Use
  Company Number: JP-BRISTOL-MYERS SQUIBB COMPANY-14988745

PATIENT
  Age: 59 Year
  Sex: Female

DRUGS (1)
  1. ERBITUX [Suspect]
     Indication: COLON CANCER
     Route: 041

REACTIONS (1)
  - ERYTHEMA NODOSUM [None]
